FAERS Safety Report 10239450 (Version 2)
Quarter: 2014Q2

REPORT INFORMATION
  Report Type: Spontaneous
  Country: US (occurrence: None)
  Receive Date: 20140612
  Receipt Date: 20140620
  Transmission Date: 20141212
  Serious: Yes (Other)
  Sender: FDA-Public Use
  Company Number: UNT-2014-001533

PATIENT
  Age: 68 Year
  Sex: Male
  Weight: 93 kg

DRUGS (1)
  1. TYVASO [Suspect]
     Indication: PULMONARY ARTERIAL HYPERTENSION
     Route: 055
     Dates: start: 20140504

REACTIONS (5)
  - Oedema peripheral [None]
  - Pain in extremity [None]
  - Weight decreased [None]
  - Erythema [None]
  - Malaise [None]
